FAERS Safety Report 6932291-7 (Version None)
Quarter: 2010Q3

REPORT INFORMATION
  Report Type: 
  Country: None (occurrence: None)
  Receive Date: 20100819
  Receipt Date: 20100813
  Transmission Date: 20110219
  Serious: Yes (Hospitalization)
  Sender: FDA-Public Use
  Company Number: FR-ROCHE-721142

PATIENT
  Sex: Female

DRUGS (5)
  1. TAMIFLU [Suspect]
     Route: 048
     Dates: start: 20091223, end: 20100102
  2. ROCEPHIN [Suspect]
     Indication: PRODUCT USED FOR UNKNOWN INDICATION
     Route: 042
     Dates: start: 20091223, end: 20091228
  3. LOVENOX [Concomitant]
     Dates: start: 20091223, end: 20100101
  4. HALDOL [Concomitant]
     Dosage: FORM: AMPULES; DOSE: 2 AMPULES EVERY 4 WEEKS
  5. LEPTICUR [Concomitant]
     Dosage: ONE TABLET IN THE MORNING

REACTIONS (1)
  - JAUNDICE CHOLESTATIC [None]
